FAERS Safety Report 11312277 (Version 1)
Quarter: 2015Q3

REPORT INFORMATION
  Report Type: Spontaneous
  Country: US (occurrence: US)
  Receive Date: 20150727
  Receipt Date: 20150727
  Transmission Date: 20151125
  Serious: Yes (Hospitalization)
  Sender: FDA-Public Use
  Company Number: US-PFIZER INC-2014326696

PATIENT
  Age: 60 Year
  Sex: Male
  Weight: 82 kg

DRUGS (2)
  1. RAPAMUNE [Suspect]
     Active Substance: SIROLIMUS
     Indication: IMMUNOSUPPRESSION
     Dosage: 2 DF (1 MG), 1X/DAY
     Route: 048
     Dates: start: 2011
  2. CARVEDILOL. [Concomitant]
     Active Substance: CARVEDILOL
     Indication: BLOOD PRESSURE ABNORMAL
     Dosage: 2 DF, 2X/DAY
     Route: 048

REACTIONS (1)
  - Aortic dissection [Unknown]

NARRATIVE: CASE EVENT DATE: 20150430
